FAERS Safety Report 6942774-1 (Version None)
Quarter: 2010Q3

REPORT INFORMATION
  Report Type: 
  Country: None (occurrence: None)
  Receive Date: 20100826
  Receipt Date: 20100818
  Transmission Date: 20110219
  Serious: Yes (Other)
  Sender: FDA-Public Use
  Company Number: DE-JNJFOC-20100808061

PATIENT
  Age: 49 Year
  Sex: Female

DRUGS (2)
  1. LEVOFLOXACIN [Suspect]
     Indication: PRODUCT USED FOR UNKNOWN INDICATION
     Route: 048
  2. CEFUROXIME [Concomitant]
     Route: 065

REACTIONS (2)
  - HEARING IMPAIRED [None]
  - TINNITUS [None]
